FAERS Safety Report 10061570 (Version 1)
Quarter: 2014Q2

REPORT INFORMATION
  Report Type: Spontaneous
  Country: US (occurrence: None)
  Receive Date: 20140404
  Receipt Date: 20140404
  Transmission Date: 20141212
  Serious: Yes (Disabling)
  Sender: FDA-Public Use
  Company Number: None

PATIENT
  Age: 58 Year
  Sex: Female
  Weight: 82.56 kg

DRUGS (5)
  1. HUMIRA PEN [Suspect]
     Indication: PSORIASIS
     Dates: start: 20140225, end: 20140301
  2. HUMIRA PEN [Suspect]
     Indication: PSORIASIS
     Dates: start: 20140225, end: 20140301
  3. HUMIRA PEN [Suspect]
     Indication: PSORIATIC ARTHROPATHY
     Dates: start: 20140225, end: 20140301
  4. PREMARIN [Concomitant]
  5. ENALAPRIL [Concomitant]

REACTIONS (2)
  - Myalgia [None]
  - Back pain [None]
